FAERS Safety Report 20707270 (Version 2)
Quarter: 2022Q3

REPORT INFORMATION
  Report Type: Other
  Country: PT (occurrence: PT)
  Receive Date: 20220413
  Receipt Date: 20220720
  Transmission Date: 20221026
  Serious: Yes (Death)
  Sender: FDA-Public Use
  Company Number: PT-002147023-NVSC2022PT073306

PATIENT
  Age: 58 Year
  Sex: Female

DRUGS (1)
  1. RITUXIMAB [Suspect]
     Active Substance: RITUXIMAB
     Indication: Inflammatory bowel disease
     Dosage: UNK
     Route: 065

REACTIONS (2)
  - Malabsorption [Fatal]
  - Off label use [Unknown]
